FAERS Safety Report 6172082-0 (Version None)
Quarter: 2009Q2

REPORT INFORMATION
  Report Type: 
  Country: None (occurrence: None)
  Receive Date: 20090429
  Receipt Date: 20090422
  Transmission Date: 20091009
  Serious: Yes (Other)
  Sender: FDA-Public Use
  Company Number: US-ELI_LILLY_AND_COMPANY-US200904004903

PATIENT
  Sex: Female

DRUGS (9)
  1. HUMALOG [Suspect]
     Indication: TYPE 2 DIABETES MELLITUS
     Dosage: 15 U, OTHER
     Dates: start: 20090201
  2. LANTUS [Concomitant]
     Dosage: 60 U, EACH MORNING
  3. METOPROLOL SUCCINATE [Concomitant]
     Indication: HYPERTENSION
  4. CADUET [Concomitant]
  5. NIASPAN [Concomitant]
  6. CALCIUM [Concomitant]
     Dosage: 500 MG, DAILY (1/D)
  7. PLAVIX [Concomitant]
  8. ASPIRIN [Concomitant]
     Dosage: 325 MG, DAILY (1/D)
  9. MICARDIS [Concomitant]

REACTIONS (2)
  - HYPOGLYCAEMIC UNCONSCIOUSNESS [None]
  - STUPOR [None]
